FAERS Safety Report 4356196-3 (Version None)
Quarter: 2004Q2

REPORT INFORMATION
  Report Type: 
  Country: None (occurrence: None)
  Receive Date: 20040511
  Receipt Date: 20040428
  Transmission Date: 20050107
  Serious: Yes (Hospitalization)
  Sender: FDA-Public Use
  Company Number: 200411519GDS

PATIENT
  Age: 48 Year
  Sex: Male
  Weight: 69 kg

DRUGS (1)
  1. APROTININ [Suspect]
     Indication: OPERATIVE HAEMORRHAGE

REACTIONS (16)
  - AORTIC THROMBOSIS [None]
  - BRADYCARDIA [None]
  - CARDIAC ARREST [None]
  - CAROTID ARTERY THROMBOSIS [None]
  - CATHETER RELATED COMPLICATION [None]
  - CEREBRAL ARTERY THROMBOSIS [None]
  - COAGULOPATHY [None]
  - CORONARY ARTERY THROMBOSIS [None]
  - FIBRINOLYSIS [None]
  - HYPOTENSION [None]
  - ILIAC ARTERY THROMBOSIS [None]
  - INTRACARDIAC THROMBUS [None]
  - PROCEDURAL COMPLICATION [None]
  - PULMONARY EMBOLISM [None]
  - RENAL ARTERY THROMBOSIS [None]
  - VENA CAVA THROMBOSIS [None]
